FAERS Safety Report 16305268 (Version 1)
Quarter: 2019Q2

REPORT INFORMATION
  Report Type: Spontaneous
  Country: US (occurrence: US)
  Receive Date: 20190511
  Receipt Date: 20190511
  Transmission Date: 20190711
  Serious: Yes (Hospitalization)
  Sender: FDA-Public Use
  Company Number: None

PATIENT
  Age: 44 Year
  Sex: Female
  Weight: 88.2 kg

DRUGS (5)
  1. RHOPRESSA [Concomitant]
     Active Substance: NETARSUDIL MESYLATE
  2. LISINOPRIL. [Concomitant]
     Active Substance: LISINOPRIL
  3. TOPIRAMATE 25MG UNI [Suspect]
     Active Substance: TOPIRAMATE
     Indication: MIGRAINE
     Dosage: ?          QUANTITY:2 TABLET(S);?
     Route: 048
     Dates: start: 20190501, end: 20190509
  4. EXCEDRIN [Concomitant]
     Active Substance: ACETAMINOPHEN\ASPIRIN\CAFFEINE
  5. METOPROLOL. [Concomitant]
     Active Substance: METOPROLOL

REACTIONS (7)
  - Panic attack [None]
  - Paraesthesia [None]
  - Cerebrovascular accident [None]
  - Anxiety [None]
  - Tremor [None]
  - Product substitution issue [None]
  - Mental disorder [None]

NARRATIVE: CASE EVENT DATE: 20190510
